FAERS Safety Report 13862660 (Version 2)
Quarter: 2017Q3

REPORT INFORMATION
  Report Type: Report from Study
  Country: TW (occurrence: TW)
  Receive Date: 20170814
  Receipt Date: 20170818
  Transmission Date: 20171127
  Serious: Yes (Death)
  Sender: FDA-Public Use
  Company Number: TW-ROCHE-1978031

PATIENT

DRUGS (1)
  1. TOCILIZUMAB. [Suspect]
     Active Substance: TOCILIZUMAB
     Indication: RHEUMATOID ARTHRITIS
     Route: 042

REACTIONS (3)
  - Interstitial lung disease [Fatal]
  - Pneumonia bacterial [Fatal]
  - Acute respiratory failure [Fatal]
